FAERS Safety Report 20299627 (Version 1)
Quarter: 2022Q1

REPORT INFORMATION
  Report Type: Spontaneous
  Country: DK (occurrence: DK)
  Receive Date: 20220105
  Receipt Date: 20220105
  Transmission Date: 20220423
  Serious: Yes (Hospitalization, Disabling)
  Sender: FDA-Public Use
  Company Number: None

PATIENT
  Age: 73 Year
  Sex: Female

DRUGS (3)
  1. ATORVASTATIN [Suspect]
     Active Substance: ATORVASTATIN
     Indication: Hypercholesterolaemia
     Dosage: UNIT DOSE:20MILLIGRAM
     Route: 048
     Dates: start: 20191213, end: 20210104
  2. ATORVASTATIN [Suspect]
     Active Substance: ATORVASTATIN
     Indication: Hypercholesterolaemia
     Dosage: STRENGHT: 80 MG,ATORVASTATIN ^KRKA^,UNIT DOSE:80MILLIGRAM
     Route: 048
     Dates: start: 20210105, end: 20210303
  3. ROSUVASTATIN [Suspect]
     Active Substance: ROSUVASTATIN
     Indication: Hypercholesterolaemia
     Dosage: UNIT DOSE:5 MG,ROSUVASTATIN ^MYLAN^
     Route: 048
     Dates: start: 20210303

REACTIONS (2)
  - Muscular weakness [Unknown]
  - Renal disorder [Unknown]

NARRATIVE: CASE EVENT DATE: 20200201
